FAERS Safety Report 16889605 (Version 1)
Quarter: 2019Q4

REPORT INFORMATION
  Report Type: Spontaneous
  Country: GB (occurrence: GB)
  Receive Date: 20191007
  Receipt Date: 20191007
  Transmission Date: 20200122
  Serious: Yes (Other)
  Sender: FDA-Public Use
  Company Number: GB-LEO PHARMA-325482

PATIENT
  Age: 70 Year
  Sex: Male

DRUGS (1)
  1. PICATO [Suspect]
     Active Substance: INGENOL MEBUTATE
     Indication: ACTINIC KERATOSIS
     Dosage: SMALL DROPS RUBBED INTO AFFECTED SKIN
     Route: 061

REACTIONS (8)
  - Sneezing [Recovering/Resolving]
  - Hyperhidrosis [Recovering/Resolving]
  - Rhinorrhoea [Recovering/Resolving]
  - Toothache [Recovering/Resolving]
  - Eye pain [Recovering/Resolving]
  - Oropharyngeal pain [Recovering/Resolving]
  - Musculoskeletal pain [Recovering/Resolving]
  - Headache [Recovering/Resolving]

NARRATIVE: CASE EVENT DATE: 20190903
